FAERS Safety Report 4824964-7 (Version None)
Quarter: 2005Q4

REPORT INFORMATION
  Report Type: 
  Country: None (occurrence: None)
  Receive Date: 20051110
  Receipt Date: 20051004
  Transmission Date: 20060501
  Serious: Yes (Other)
  Sender: FDA-Public Use
  Company Number: US-MERCK-0510USA03301

PATIENT
  Sex: Female
  Weight: 68 kg

DRUGS (5)
  1. VIOXX [Suspect]
     Indication: ARTHRALGIA
     Route: 048
     Dates: start: 20010101, end: 20030101
  2. VIOXX [Suspect]
     Route: 048
     Dates: start: 20010101, end: 20030101
  3. VIOXX [Suspect]
     Indication: BACK PAIN
     Route: 048
     Dates: start: 20010101, end: 20030101
  4. VIOXX [Suspect]
     Route: 048
     Dates: start: 20010101, end: 20030101
  5. SULAR [Concomitant]
     Route: 065

REACTIONS (3)
  - ARTHRITIS [None]
  - MYOCARDIAL INFARCTION [None]
  - OVERDOSE [None]
